FAERS Safety Report 4747906-1 (Version None)
Quarter: 2005Q3

REPORT INFORMATION
  Report Type: 
  Country: None (occurrence: None)
  Receive Date: 20050818
  Receipt Date: 20050103
  Transmission Date: 20060218
  Serious: Yes (Hospitalization)
  Sender: FDA-Public Use
  Company Number: US-BRISTOL-MYERS SQUIBB COMPANY-12811865

PATIENT
  Age: 74 Year
  Sex: Male

DRUGS (7)
  1. CISPLATIN [Suspect]
     Indication: BLADDER NEOPLASM
     Dosage: ADMINISTERED DAY 2 OF CYCLE 2
     Route: 042
     Dates: start: 20041221, end: 20041221
  2. METHOTREXATE [Suspect]
     Indication: BLADDER NEOPLASM
     Dosage: ADMINISTERED DAY 1 OF CYCLE 2
     Route: 042
     Dates: start: 20041220, end: 20041220
  3. ADRIAMYCIN PFS [Suspect]
     Indication: BLADDER NEOPLASM
     Dosage: ADMINISTERED DAY 2 OF CYCLE 2
     Route: 042
     Dates: start: 20041221, end: 20041221
  4. VELBAN [Suspect]
     Indication: BLADDER NEOPLASM
     Dosage: ADMINISTERED DAY 2 OF CYCLE 2
     Route: 042
     Dates: start: 20041221, end: 20041221
  5. FLOMAX [Concomitant]
  6. LUPRON [Concomitant]
  7. CASODEX [Concomitant]

REACTIONS (1)
  - CONVULSION [None]
